FAERS Safety Report 10076502 (Version 2)
Quarter: 2014Q2

REPORT INFORMATION
  Report Type: Spontaneous
  Country: JP (occurrence: JP)
  Receive Date: 20140414
  Receipt Date: 20140422
  Transmission Date: 20141212
  Serious: Yes (Other)
  Sender: FDA-Public Use
  Company Number: JP-TEVA-473154ISR

PATIENT
  Age: 76 Year
  Sex: Male

DRUGS (5)
  1. HYDROCORTISONE [Suspect]
     Dosage: 20 MILLIGRAM DAILY;
     Route: 065
  2. PREDNISOLONE [Suspect]
     Dosage: 20 MILLIGRAM DAILY;
     Route: 048
  3. PREDNISOLONE [Suspect]
     Dosage: 10 MILLIGRAM DAILY;
  4. INSULIN [Concomitant]
     Indication: DIABETES MELLITUS
     Route: 065
     Dates: start: 2005
  5. LEVOTHYROXINE SODIUM [Concomitant]
     Dosage: 25 MICROGRAM DAILY;
     Route: 065

REACTIONS (1)
  - Diabetes insipidus [Recovering/Resolving]
